FAERS Safety Report 9284359 (Version 1)
Quarter: 2013Q2

REPORT INFORMATION
  Report Type: Spontaneous
  Country: US (occurrence: US)
  Receive Date: 20130510
  Receipt Date: 20130510
  Transmission Date: 20140414
  Serious: No
  Sender: FDA-Public Use
  Company Number: US-ASTRAZENECA-2013SE30072

PATIENT
  Age: 75 Year
  Sex: Female
  Weight: 81.6 kg

DRUGS (3)
  1. SYMBICORT [Suspect]
     Indication: ASTHMA
     Dosage: 160 TWO PUFFS TWO TIMES A DAY
     Route: 055
  2. SINGULAR [Concomitant]
     Indication: ASTHMA
     Dosage: LOWEST DOSE AT NIGHT
     Route: 048
     Dates: start: 2010
  3. COZAAR [Concomitant]
     Indication: HYPERTENSION
     Dosage: LOW DOSE DAILY
     Route: 055

REACTIONS (8)
  - Sinusitis [Unknown]
  - Sinus headache [Unknown]
  - Dizziness [Unknown]
  - Hypertension [Unknown]
  - Muscle spasms [Unknown]
  - Increased tendency to bruise [Unknown]
  - Muscle spasms [Unknown]
  - Cough [Unknown]
